FAERS Safety Report 12554120 (Version 4)
Quarter: 2017Q2

REPORT INFORMATION
  Report Type: Spontaneous
  Country: US (occurrence: US)
  Receive Date: 20160713
  Receipt Date: 20170405
  Transmission Date: 20170830
  Serious: No
  Sender: FDA-Public Use
  Company Number: US-INCYTE CORPORATION-2016IN004132

PATIENT
  Age: 48 Year
  Sex: Female

DRUGS (2)
  1. JAKAFI [Suspect]
     Active Substance: RUXOLITINIB
     Dosage: 20 MG, BID
     Route: 048
     Dates: start: 20160413
  2. JAKAFI [Suspect]
     Active Substance: RUXOLITINIB
     Indication: MYELOFIBROSIS
     Dosage: 20 MG, BID
     Route: 048
     Dates: start: 201607

REACTIONS (11)
  - Paranasal sinus discomfort [Unknown]
  - Incorrect dose administered [Unknown]
  - Headache [Unknown]
  - Blood potassium abnormal [Unknown]
  - Sinus headache [Unknown]
  - Blood pressure abnormal [Unknown]
  - Rash [Unknown]
  - Pain [Unknown]
  - Fatigue [Unknown]
  - Oral mucosal eruption [Unknown]
  - Facial pain [Unknown]

NARRATIVE: CASE EVENT DATE: 20160516
